FAERS Safety Report 12409219 (Version 1)
Quarter: 2016Q2

REPORT INFORMATION
  Report Type: Spontaneous
  Country: IT (occurrence: IT)
  Receive Date: 20160526
  Receipt Date: 20160526
  Transmission Date: 20160815
  Serious: Yes (Other)
  Sender: FDA-Public Use
  Company Number: IT-KADMON PHARMACEUTICALS, LLC-KAD201605-001928

PATIENT
  Age: 61 Year
  Sex: Male

DRUGS (4)
  1. VIEKIRAX [Suspect]
     Active Substance: OMBITASVIR\PARITAPREVIR\RITONAVIR
     Indication: HEPATITIS C
     Route: 048
     Dates: start: 20150825, end: 20151120
  2. RIBAVIRIN. [Suspect]
     Active Substance: RIBAVIRIN
     Indication: HEPATITIS C
     Route: 048
     Dates: start: 20150825, end: 20151110
  3. EXVIERA [Suspect]
     Active Substance: DASABUVIR
     Indication: HEPATITIS C
     Route: 048
     Dates: start: 20150825, end: 20151120
  4. REALSIL [Concomitant]

REACTIONS (1)
  - Hepatic lesion [Unknown]

NARRATIVE: CASE EVENT DATE: 20160316
